FAERS Safety Report 7644050-0 (Version None)
Quarter: 2011Q3

REPORT INFORMATION
  Report Type: 
  Country: None (occurrence: None)
  Receive Date: 20110729
  Receipt Date: 20110718
  Transmission Date: 20111222
  Serious: Yes (Hospitalization, Other)
  Sender: FDA-Public Use
  Company Number: IT-BRISTOL-MYERS SQUIBB COMPANY-15908528

PATIENT
  Age: 71 Year
  Sex: Female

DRUGS (4)
  1. CISPLATIN [Suspect]
     Indication: OVARIAN EPITHELIAL CANCER
  2. PACLITAXEL [Suspect]
  3. CARBOPLATIN [Suspect]
  4. CYCLOPHOSPHAMIDE [Suspect]
     Indication: OVARIAN EPITHELIAL CANCER

REACTIONS (2)
  - KOUNIS SYNDROME [None]
  - HYPERSENSITIVITY [None]
